FAERS Safety Report 7338157-5 (Version None)
Quarter: 2011Q1

REPORT INFORMATION
  Report Type: 
  Country: None (occurrence: None)
  Receive Date: 20110228
  Receipt Date: 20110217
  Transmission Date: 20110831
  Serious: Yes (Other)
  Sender: FDA-Public Use
  Company Number: 2011000824

PATIENT
  Age: 77 Year
  Sex: Female

DRUGS (1)
  1. TARCEVA [Suspect]
     Indication: NON-SMALL CELL LUNG CANCER
     Dosage: (MG,QD),ORAL; BEGAN LATE DEC
     Route: 048

REACTIONS (8)
  - RASH [None]
  - ANAEMIA [None]
  - PLEURAL EFFUSION [None]
  - ASTHENIA [None]
  - FATIGUE [None]
  - ABDOMINAL PAIN UPPER [None]
  - COUGH [None]
  - RETCHING [None]
